FAERS Safety Report 5127164-9 (Version None)
Quarter: 2006Q4

REPORT INFORMATION
  Report Type: 
  Country: None (occurrence: None)
  Receive Date: 20061010
  Receipt Date: 20060919
  Transmission Date: 20070319
  Serious: Yes (Other)
  Sender: FDA-Public Use
  Company Number: 2006119878

PATIENT
  Age: 52 Year
  Sex: Female

DRUGS (8)
  1. SUTENT [Suspect]
     Indication: RENAL CANCER METASTATIC
     Dosage: 50 MG (1 IN 1 D)
     Dates: start: 20060501
  2. SOLUPRED (PREDNISOLONE SODIUM SULFOBENZOATE) [Concomitant]
  3. PAROXETINE HYDROCHLORIDE [Concomitant]
  4. CALCIUM CARBONATE (CALCIUM CARBONATE) [Concomitant]
  5. LEXOMIL (BROMAZEPAM) [Concomitant]
  6. ACETAMINOPHEN [Concomitant]
  7. DURAGESIC-100 [Concomitant]
  8. NEXIUM [Concomitant]

REACTIONS (1)
  - RETINOPATHY [None]
